FAERS Safety Report 7417430-6 (Version None)
Quarter: 2011Q2

REPORT INFORMATION
  Report Type: 
  Country: None (occurrence: None)
  Receive Date: 20110415
  Receipt Date: 20110405
  Transmission Date: 20111010
  Serious: Yes (Other)
  Sender: FDA-Public Use
  Company Number: US-SANOFI-AVENTIS-2011SA021233

PATIENT
  Age: 46 Year
  Sex: Male

DRUGS (18)
  1. QUETIAPINE FUMARATE [Suspect]
     Dosage: REDUCED DOSAGE
     Route: 065
  2. ESCITALOPRAM [Suspect]
     Route: 065
  3. MARIJUANA [Suspect]
     Indication: DRUG ABUSE
     Route: 065
  4. QUETIAPINE FUMARATE [Suspect]
     Indication: ANXIETY
     Route: 065
  5. METAMFETAMINE [Suspect]
     Indication: DRUG DEPENDENCE
     Route: 065
  6. LAMIVUDINE + ZIDOVUDINE [Concomitant]
     Route: 065
  7. QUETIAPINE FUMARATE [Suspect]
     Dosage: REDUCED DOSAGE
     Route: 065
  8. ESCITALOPRAM [Suspect]
     Route: 065
  9. MARIJUANA [Suspect]
     Dosage: TAKEN INTERMITTENTLY
     Route: 065
  10. QUETIAPINE FUMARATE [Suspect]
     Route: 065
  11. ESCITALOPRAM [Suspect]
     Dosage: RETURNED TO BASELINE.
     Route: 065
  12. ZOLPIDEM [Suspect]
     Indication: INSOMNIA
     Route: 065
  13. COCAINE [Suspect]
     Indication: DRUG ABUSE
     Route: 065
  14. QUETIAPINE FUMARATE [Suspect]
     Indication: INSOMNIA
     Route: 065
  15. NEVIRAPINE [Concomitant]
     Route: 065
  16. QUETIAPINE FUMARATE [Suspect]
     Route: 065
  17. ZOLPIDEM [Suspect]
     Dosage: DOSE: 40-60 MG OVERDOSE
     Route: 065
  18. ESCITALOPRAM [Suspect]
     Route: 065

REACTIONS (6)
  - PAINFUL ERECTION [None]
  - PRIAPISM [None]
  - OVERDOSE [None]
  - HYPOMANIA [None]
  - FLIGHT OF IDEAS [None]
  - INAPPROPRIATE AFFECT [None]
